FAERS Safety Report 8403032-1 (Version None)
Quarter: 2012Q2

REPORT INFORMATION
  Report Type: 
  Country: None (occurrence: None)
  Receive Date: 20120601
  Receipt Date: 20120522
  Transmission Date: 20120825
  Serious: Yes (Hospitalization, Other)
  Sender: FDA-Public Use
  Company Number: US-ELI_LILLY_AND_COMPANY-US201205008280

PATIENT
  Age: 75 Year
  Sex: Female

DRUGS (1)
  1. FORTEO [Suspect]
     Indication: OSTEOPOROSIS
     Dosage: 20 UG, QD
     Dates: start: 20111101

REACTIONS (7)
  - THROAT IRRITATION [None]
  - LUNG DISORDER [None]
  - PAIN [None]
  - UPPER LIMB FRACTURE [None]
  - DECREASED APPETITE [None]
  - FALL [None]
  - WEIGHT DECREASED [None]
